FAERS Safety Report 5872244-3 (Version None)
Quarter: 2008Q3

REPORT INFORMATION
  Report Type: 
  Country: None (occurrence: None)
  Receive Date: 20080905
  Receipt Date: 20080901
  Transmission Date: 20090109
  Serious: Yes (Other)
  Sender: FDA-Public Use
  Company Number: GB-ROCHE-583755

PATIENT
  Age: 59 Year
  Sex: Female
  Weight: 75.5 kg

DRUGS (3)
  1. ORLISTAT [Suspect]
     Indication: WEIGHT CONTROL
     Route: 048
     Dates: start: 20071205, end: 20080204
  2. THYROXINE [Concomitant]
     Indication: HYPOTHYROIDISM
     Route: 048
     Dates: start: 20050523
  3. DELPHI [Concomitant]
     Indication: SKIN HYPERPIGMENTATION
     Dosage: ENTERED AS DELPHI SPF LOTION.
     Route: 061
     Dates: start: 20061204

REACTIONS (1)
  - SKIN HYPERPIGMENTATION [None]
